FAERS Safety Report 11195600 (Version 1)
Quarter: 2015Q2

REPORT INFORMATION
  Report Type: Spontaneous
  Country: US (occurrence: US)
  Receive Date: 20150617
  Receipt Date: 20150617
  Transmission Date: 20150821
  Serious: No
  Sender: FDA-Public Use
  Company Number: US-PFIZER INC-2015201775

PATIENT
  Age: 61 Year
  Sex: Male

DRUGS (1)
  1. CEREBYX [Suspect]
     Active Substance: FOSPHENYTOIN SODIUM
     Dosage: UNK

REACTIONS (1)
  - Drug hypersensitivity [Not Recovered/Not Resolved]
